FAERS Safety Report 13910913 (Version 1)
Quarter: 2017Q3

REPORT INFORMATION
  Report Type: Spontaneous
  Country: NL (occurrence: NL)
  Receive Date: 20170828
  Receipt Date: 20170828
  Transmission Date: 20171127
  Serious: Yes (Hospitalization, Other)
  Sender: FDA-Public Use
  Company Number: NL-PFIZER INC-2017366463

PATIENT
  Age: 25 Year
  Sex: Female
  Weight: 54 kg

DRUGS (1)
  1. CHAMPIX [Suspect]
     Active Substance: VARENICLINE TARTRATE
     Indication: SMOKING CESSATION THERAPY
     Dosage: 1 DF, 2X/DAY
     Route: 048
     Dates: start: 20170703, end: 20170814

REACTIONS (5)
  - Haematemesis [Recovered/Resolved with Sequelae]
  - Abdominal distension [Recovered/Resolved with Sequelae]
  - Upper respiratory tract infection [Recovered/Resolved with Sequelae]
  - Gastric ulcer [Recovered/Resolved with Sequelae]
  - Gastrooesophageal reflux disease [Recovered/Resolved with Sequelae]

NARRATIVE: CASE EVENT DATE: 20170711
